FAERS Safety Report 6432319-7 (Version None)
Quarter: 2009Q4

REPORT INFORMATION
  Report Type: 
  Country: None (occurrence: None)
  Receive Date: 20091105
  Receipt Date: 20091021
  Transmission Date: 20100525
  Serious: Yes (Other)
  Sender: FDA-Public Use
  Company Number: AUR-APL-2009-01011

PATIENT

DRUGS (1)
  1. ALENDRONATE [Suspect]
     Dosage: 70MG - QO WEEIK

REACTIONS (3)
  - FEMUR FRACTURE [None]
  - IMPAIRED HEALING [None]
  - STRESS FRACTURE [None]
